FAERS Safety Report 7442310-X (Version None)
Quarter: 2011Q2

REPORT INFORMATION
  Report Type: 
  Country: None (occurrence: None)
  Receive Date: 20110425
  Receipt Date: 20110425
  Transmission Date: 20111010
  Serious: Yes (Hospitalization, Other)
  Sender: FDA-Public Use
  Company Number: None

PATIENT
  Age: 61 Year
  Sex: Male
  Weight: 69.8539 kg

DRUGS (11)
  1. ASPIRIN [Concomitant]
  2. VARDENAFIL HCL [Concomitant]
  3. HYDROCODONE BITARTRATE + ACETAMINOPHEN [Concomitant]
  4. CODEINE 30/APAP 300 [Concomitant]
  5. SIMVASTATIN [Concomitant]
  6. LISINOPRIL [Concomitant]
  7. ERGOCALCIFEROL [Concomitant]
  8. HYDROCHLOROTHIAZIDE [Concomitant]
  9. VARDENAFIL HYDROCHLORIDE (LEVITRA) [Suspect]
     Indication: ERECTILE DYSFUNCTION
     Dosage: 1/2 TAB -10MG- BEFORE SEX PO
     Route: 048
     Dates: start: 20081001, end: 20110320
  10. PREDNISONE [Concomitant]
  11. AMLODIPINE BESYLATE [Concomitant]

REACTIONS (1)
  - CONVULSION [None]
